FAERS Safety Report 5779636-1 (Version None)
Quarter: 2008Q2

REPORT INFORMATION
  Report Type: 
  Country: None (occurrence: None)
  Receive Date: 20080619
  Receipt Date: 20080607
  Transmission Date: 20081010
  Serious: Yes (Other)
  Sender: FDA-Public Use
  Company Number: US-PFIZER INC-2008049978

PATIENT
  Sex: Female
  Weight: 77.1 kg

DRUGS (5)
  1. CHANTIX [Suspect]
     Indication: SMOKING CESSATION THERAPY
     Route: 048
  2. LEXAPRO [Concomitant]
  3. LIPITOR [Concomitant]
  4. IBUROFEN [Concomitant]
  5. FIORICET [Concomitant]

REACTIONS (3)
  - ANXIETY [None]
  - MOOD ALTERED [None]
  - VIOLENCE-RELATED SYMPTOM [None]
